FAERS Safety Report 18870717 (Version 2)
Quarter: 2021Q4

REPORT INFORMATION
  Report Type: Spontaneous
  Country: GB (occurrence: GB)
  Receive Date: 20210209
  Receipt Date: 20211027
  Transmission Date: 20220304
  Serious: Yes (Disabling, Other)
  Sender: FDA-Public Use
  Company Number: GB-MHRA-INP26267133-82D5-4C3D-AFDC-33F8913BE913

PATIENT
  Age: 47 Year
  Sex: Male
  Weight: 56 kg

DRUGS (3)
  1. DULOXETINE [Suspect]
     Active Substance: DULOXETINE
     Indication: Carpal tunnel decompression
     Dosage: 30 MILLIGRAM, TWO TIMES A DAY
     Route: 048
     Dates: start: 20201105
  2. DULOXETINE [Suspect]
     Active Substance: DULOXETINE
     Dosage: UNK
     Route: 048
     Dates: start: 20201105, end: 20201203
  3. GABAPENTIN [Concomitant]
     Active Substance: GABAPENTIN
     Indication: Product used for unknown indication
     Dosage: ONE DAILY FOR 3 DAYS THEN ONE TWICE A DAY FOR 3 DAYS THEN ONE THREE TIMES A DAY
     Route: 065
     Dates: start: 20210203

REACTIONS (2)
  - Adverse drug reaction [Recovered/Resolved]
  - Electric shock sensation [Recovered/Resolved]

NARRATIVE: CASE EVENT DATE: 20201203
